FAERS Safety Report 9943110 (Version 3)
Quarter: 2014Q2

REPORT INFORMATION
  Report Type: Spontaneous
  Country: US (occurrence: US)
  Receive Date: 20140303
  Receipt Date: 20140416
  Transmission Date: 20141212
  Serious: No
  Sender: FDA-Public Use
  Company Number: US-PFIZER INC-2014058778

PATIENT
  Age: 50 Year
  Sex: Female

DRUGS (9)
  1. EFFEXOR [Suspect]
     Dosage: UNK
  2. ERYTHROMYCIN [Suspect]
     Dosage: UNK
  3. LEVOFLOXACIN [Suspect]
     Dosage: UNK
  4. ZITHROMAX [Suspect]
     Dosage: UNK
  5. Z-PACK [Suspect]
     Dosage: UNK
  6. CEFZIL [Suspect]
     Dosage: UNK
  7. AUGMENTIN [Suspect]
     Dosage: UNK
  8. LAMICTAL [Suspect]
     Dosage: UNK
  9. RISPERDAL [Suspect]
     Dosage: UNK

REACTIONS (1)
  - Drug hypersensitivity [Unknown]
